FAERS Safety Report 9251219 (Version 2)
Quarter: 2014Q1

REPORT INFORMATION
  Report Type: Spontaneous
  Country: US (occurrence: None)
  Receive Date: 20130305
  Receipt Date: 20140306
  Transmission Date: 20141002
  Serious: Yes (Other)
  Sender: FDA-Public Use
  Company Number: 163-21880-12090347

PATIENT
  Age: 81 Year
  Sex: Male
  Weight: 77 kg

DRUGS (8)
  1. REVLIMID [Suspect]
     Indication: MYELOFIBROSIS
     Dosage: 5 MG, 21 IN 21 D PO
     Route: 048
     Dates: start: 20120821
  2. RAMIPRIL (RAMIPRIL) [Concomitant]
  3. CENTRUM (CENTRUM) [Concomitant]
  4. ASPIRIN (ACETYLSALICYLIC ACID) [Concomitant]
  5. FISH OIL (FISH OIL) [Concomitant]
  6. PREDNISONE (PREDNISONE) [Concomitant]
  7. EXJADE ( DEFERASIROX) [Concomitant]
  8. GLIMEPIRIDE [Concomitant]

REACTIONS (2)
  - Diarrhoea [None]
  - Haemoglobin decreased [None]
